FAERS Safety Report 7222173-8 (Version None)
Quarter: 2011Q1

REPORT INFORMATION
  Report Type: 
  Country: None (occurrence: None)
  Receive Date: 20110103
  Receipt Date: 20101221
  Transmission Date: 20110831
  Serious: Yes (Hospitalization)
  Sender: FDA-Public Use
  Company Number: DSA_44580_2010

PATIENT
  Age: 82 Year
  Sex: Female

DRUGS (7)
  1. INIPOMP [Concomitant]
  2. LASIX [Concomitant]
  3. FERROUS SULFATE TAB [Concomitant]
  4. TRINIPATCH [Concomitant]
  5. ACTISKENAN [Concomitant]
  6. PREVISCAN /00789001/ [Concomitant]
  7. MONO-TILDIEM (MONO-TILDIEM DILTIAZEM HYDROCHLORIDE) 200 MG (NOT SPECIF [Suspect]
     Indication: PRODUCT USED FOR UNKNOWN INDICATION
     Dosage: (200 MG QD ORAL)
     Route: 048
     Dates: end: 20090810

REACTIONS (14)
  - CHEST PAIN [None]
  - HOT FLUSH [None]
  - MICROCYTIC ANAEMIA [None]
  - BRADYCARDIA [None]
  - HAEMATOMA [None]
  - HYPERHIDROSIS [None]
  - HYPERKALAEMIA [None]
  - CONDITION AGGRAVATED [None]
  - BLOOD PRESSURE DIASTOLIC DECREASED [None]
  - RENAL FAILURE CHRONIC [None]
  - MALAISE [None]
  - FALL [None]
  - ABDOMINAL PAIN UPPER [None]
  - NAUSEA [None]
